FAERS Safety Report 7337020 (Version 14)
Quarter: 2013Q2

REPORT INFORMATION
  Report Type: Report from Study
  Country: CA (occurrence: CA)
  Receive Date: 20100330
  Receipt Date: 20130628
  Transmission Date: 20140414
  Serious: Yes (Death, Hospitalization, Other)
  Sender: FDA-Public Use
  Company Number: PHHY2009CA19353

PATIENT
  Age: 83 Year
  Sex: Male

DRUGS (11)
  1. SANDOSTATIN LAR [Suspect]
     Indication: HEPATIC NEOPLASM
     Dosage: 40 MG, EVERY 4 WEEKS
     Route: 030
     Dates: start: 20051006
  2. SANDOSTATIN LAR [Suspect]
     Dosage: 40 MG, QMO
     Route: 030
  3. SANDOSTATIN LAR [Suspect]
     Dosage: 40 MG, EVERY 4 WEEKS
     Route: 030
  4. SANDOSTATIN LAR [Suspect]
     Dosage: 40 MG, EVERY 3 WEEKS
     Route: 030
  5. SANDOSTATIN LAR [Suspect]
     Dosage: 40 MG, EVERY 4 WEEKS
     Route: 030
  6. SANDOSTATIN LAR [Suspect]
     Dosage: 40 MG, EVERY 4 WEEKS
     Route: 030
     Dates: end: 20130530
  7. CRESTOR [Concomitant]
     Dosage: 5 MG, UNK
     Route: 048
  8. ASACOL [Concomitant]
     Dosage: 1 DF, TID
     Route: 048
  9. SYNTHROID [Concomitant]
     Dosage: 0.15 MG, UNK
     Route: 048
  10. ENSURE [Concomitant]
     Dosage: UNK UKN, UNK
  11. PROSCAR [Concomitant]
     Dosage: 5 MG, UNK
     Route: 048

REACTIONS (24)
  - Death [Fatal]
  - Colon cancer metastatic [Unknown]
  - Metastases to bone [Unknown]
  - Abdominal mass [Unknown]
  - Blood pressure systolic increased [Unknown]
  - Arrhythmia [Recovered/Resolved]
  - Extrasystoles [Unknown]
  - Heart rate irregular [Unknown]
  - Flushing [Unknown]
  - Sciatica [Recovered/Resolved]
  - Back pain [Unknown]
  - Sedation [Unknown]
  - Hypophagia [Unknown]
  - Weight decreased [Unknown]
  - Aphasia [Unknown]
  - Quality of life decreased [Unknown]
  - Arthritis [Unknown]
  - Decreased appetite [Unknown]
  - Peripheral coldness [Unknown]
  - Aphagia [Unknown]
  - Fall [Unknown]
  - Excoriation [Unknown]
  - Asthenia [Unknown]
  - Diarrhoea [Unknown]
